FAERS Safety Report 8220041-6 (Version None)
Quarter: 2012Q1

REPORT INFORMATION
  Report Type: 
  Country: None (occurrence: None)
  Receive Date: 20120320
  Receipt Date: 20120316
  Transmission Date: 20120608
  Serious: Yes (Other)
  Sender: FDA-Public Use
  Company Number: CN-ROCHE-1050026

PATIENT
  Age: 76 Year
  Sex: Male

DRUGS (2)
  1. XELODA [Suspect]
     Indication: RECTAL CANCER
     Route: 048
  2. XELODA [Suspect]
     Route: 048
     Dates: start: 20090101

REACTIONS (7)
  - COUGH [None]
  - ABDOMINAL DISCOMFORT [None]
  - RECTAL CANCER METASTATIC [None]
  - PYREXIA [None]
  - CARCINOEMBRYONIC ANTIGEN INCREASED [None]
  - NAUSEA [None]
  - MUSCULOSKELETAL PAIN [None]
